FAERS Safety Report 12147097 (Version 2)
Quarter: 2016Q1

REPORT INFORMATION
  Report Type: Spontaneous
  Country: FR (occurrence: FR)
  Receive Date: 20160304
  Receipt Date: 20160321
  Transmission Date: 20160526
  Serious: Yes (Death, Hospitalization, Other)
  Sender: FDA-Public Use
  Company Number: FR-TEVA-639931ISR

PATIENT
  Age: 65 Year
  Sex: Female

DRUGS (7)
  1. DOXORUBICINE TEVA [Suspect]
     Active Substance: DOXORUBICIN
     Route: 042
  2. VINCRISTINE HOSPIRA [Suspect]
     Active Substance: VINCRISTINE
     Indication: DIFFUSE LARGE B-CELL LYMPHOMA
     Route: 042
     Dates: start: 20150430
  3. MABTHERA [Suspect]
     Active Substance: RITUXIMAB
     Indication: DIFFUSE LARGE B-CELL LYMPHOMA
     Route: 042
     Dates: start: 201505
  4. ETOPOSIDE. [Concomitant]
     Active Substance: ETOPOSIDE
  5. ENDOXAN [Suspect]
     Active Substance: CYCLOPHOSPHAMIDE
     Indication: DIFFUSE LARGE B-CELL LYMPHOMA
     Route: 042
     Dates: start: 20150430
  6. METHOTREXATE [Concomitant]
     Active Substance: METHOTREXATE
     Route: 037
  7. CORTANCYL [Concomitant]
     Active Substance: PREDNISONE

REACTIONS (8)
  - Left ventricular failure [Recovering/Resolving]
  - Death [Fatal]
  - Asphyxia [Unknown]
  - Shock [Unknown]
  - Cardiomyopathy acute [Recovering/Resolving]
  - Haemoptysis [Unknown]
  - Ejection fraction decreased [Recovering/Resolving]
  - Cardio-respiratory arrest [Recovering/Resolving]

NARRATIVE: CASE EVENT DATE: 20150605
